FAERS Safety Report 6968871-2 (Version None)
Quarter: 2010Q3

REPORT INFORMATION
  Report Type: 
  Country: None (occurrence: None)
  Receive Date: 20100903
  Receipt Date: 20100903
  Transmission Date: 20110219
  Serious: Yes (Hospitalization)
  Sender: FDA-Public Use
  Company Number: None

PATIENT
  Sex: Female
  Weight: 86.5 kg

DRUGS (1)
  1. MEMANTINE HCL [Suspect]
     Dosage: 1925 MG

REACTIONS (5)
  - BUNDLE BRANCH BLOCK RIGHT [None]
  - DIZZINESS [None]
  - PALPITATIONS [None]
  - PANIC ATTACK [None]
  - SUPRAVENTRICULAR TACHYCARDIA [None]
